FAERS Safety Report 18033268 (Version 1)
Quarter: 2020Q3

REPORT INFORMATION
  Report Type: Spontaneous
  Country: CN (occurrence: CN)
  Receive Date: 20200716
  Receipt Date: 20200716
  Transmission Date: 20201103
  Serious: Yes (Life-Threatening, Hospitalization)
  Sender: FDA-Public Use
  Company Number: CN-CELGENEUS-CHN-20200703794

PATIENT
  Age: 67 Year
  Sex: Male

DRUGS (3)
  1. ABRAXANE [Suspect]
     Active Substance: PACLITAXEL
     Indication: SQUAMOUS CELL CARCINOMA OF LUNG
     Dosage: 350 MILLIGRAM
     Route: 041
     Dates: start: 20190613, end: 20190613
  2. NEDAPLATIN [Suspect]
     Active Substance: NEDAPLATIN
     Indication: SQUAMOUS CELL CARCINOMA OF LUNG
     Dosage: 125 MILLIGRAM
     Route: 041
     Dates: start: 20190613, end: 20190613
  3. POLYETHYLENE GLYCOL [Concomitant]
     Active Substance: POLYETHYLENE GLYCOLS
     Indication: PRODUCT USED FOR UNKNOWN INDICATION
     Dosage: 3 MILLIGRAM
     Route: 058

REACTIONS (1)
  - Myelosuppression [Recovering/Resolving]

NARRATIVE: CASE EVENT DATE: 20190618
